FAERS Safety Report 24051029 (Version 1)
Quarter: 2024Q3

REPORT INFORMATION
  Report Type: Spontaneous
  Country: US (occurrence: US)
  Receive Date: 20240704
  Receipt Date: 20240704
  Transmission Date: 20241016
  Serious: No
  Sender: SANOFI AVENTIS
  Company Number: US-SA-SAC20240625001133

PATIENT
  Age: 20 Month
  Sex: Female

DRUGS (1)
  1. DUPIXENT [Suspect]
     Active Substance: DUPILUMAB
     Indication: Dermatitis atopic
     Dosage: 300 MG, Q4W
     Route: 058
     Dates: start: 20240617

REACTIONS (7)
  - Scratch [Unknown]
  - Condition aggravated [Unknown]
  - Sleep disorder due to a general medical condition [Unknown]
  - Restlessness [Unknown]
  - Mouth ulceration [Unknown]
  - Thirst [Unknown]
  - Rash erythematous [Unknown]

NARRATIVE: CASE EVENT DATE: 20240617
